FAERS Safety Report 18101099 (Version 1)
Quarter: 2020Q3

REPORT INFORMATION
  Report Type: Spontaneous
  Country: CN (occurrence: CN)
  Receive Date: 20200801
  Receipt Date: 20200801
  Transmission Date: 20201103
  Serious: Yes (Other)
  Sender: FDA-Public Use
  Company Number: CN-LUPIN PHARMACEUTICALS INC.-2020-04064

PATIENT
  Age: 60 Year
  Sex: Male

DRUGS (7)
  1. METRONIDAZOLE. [Suspect]
     Active Substance: METRONIDAZOLE
     Indication: PNEUMONIA KLEBSIELLA
     Dosage: 0.5 GRAM, TID
     Route: 065
  2. ENOXAPARIN [Suspect]
     Active Substance: ENOXAPARIN
     Indication: ANTICOAGULANT THERAPY
     Dosage: (3500?5500DA, 5?10 IU/KG/H)
     Route: 065
  3. IMIPENEM [Suspect]
     Active Substance: IMIPENEM
     Dosage: 1 GRAM, TID
     Route: 065
  4. NIFEDIPINE. [Concomitant]
     Active Substance: NIFEDIPINE
     Indication: HYPERTENSION
     Dosage: 30 MILLIGRAM, QD
     Route: 048
  5. IMIPENEM [Suspect]
     Active Substance: IMIPENEM
     Indication: PNEUMONIA KLEBSIELLA
     Dosage: 0.5 GRAM, QID
     Route: 065
  6. CEFOPERAZONE;SULBACTAM [Concomitant]
     Active Substance: CEFOPERAZONE\SULBACTAM
     Indication: EVIDENCE BASED TREATMENT
     Dosage: 1.5 GRAM, BID
     Route: 065
  7. INSULIN [Concomitant]
     Active Substance: INSULIN NOS
     Indication: TYPE 2 DIABETES MELLITUS
     Dosage: 30 UNITS PER DAY
     Route: 058

REACTIONS (1)
  - Drug ineffective [Unknown]
